FAERS Safety Report 6866197-9 (Version None)
Quarter: 2010Q3

REPORT INFORMATION
  Report Type: 
  Country: None (occurrence: None)
  Receive Date: 20100722
  Receipt Date: 20100714
  Transmission Date: 20110219
  Serious: Yes (Disabling)
  Sender: FDA-Public Use
  Company Number: CH-WYE-G06415610

PATIENT
  Sex: Female

DRUGS (1)
  1. EFFEXOR [Suspect]
     Dosage: THERAPY STARTED 13 YEARS AGO, DOSE AND FREQUENCY WERE UNKNOWN

REACTIONS (3)
  - IMPAIRED WORK ABILITY [None]
  - MALAISE [None]
  - PNEUMONIA [None]
